FAERS Safety Report 8080324-X (Version None)
Quarter: 2012Q1

REPORT INFORMATION
  Report Type: 
  Country: None (occurrence: None)
  Receive Date: 20120130
  Receipt Date: 20120124
  Transmission Date: 20120608
  Serious: Yes (Other)
  Sender: FDA-Public Use
  Company Number: US-PFIZER INC-2012020851

PATIENT
  Age: 75 Year
  Sex: Male

DRUGS (1)
  1. LIPITOR [Suspect]
     Dosage: UNK

REACTIONS (6)
  - ARTHROPATHY [None]
  - WRIST FRACTURE [None]
  - LYME DISEASE [None]
  - MOVEMENT DISORDER [None]
  - FALL [None]
  - LIMB DISCOMFORT [None]
